FAERS Safety Report 6747880-2 (Version None)
Quarter: 2010Q2

REPORT INFORMATION
  Report Type: 
  Country: None (occurrence: None)
  Receive Date: 20100528
  Receipt Date: 20100525
  Transmission Date: 20101027
  Serious: Yes (Hospitalization, Other)
  Sender: FDA-Public Use
  Company Number: PHHO2010BR06283

PATIENT
  Sex: Male
  Weight: 65.6 kg

DRUGS (2)
  1. AEB071 AEB+GELCAP [Suspect]
     Indication: RENAL TRANSPLANT
     Dosage: 600 MG/DAY
     Route: 048
     Dates: start: 20100319, end: 20100525
  2. CERTICAN [Suspect]
     Indication: RENAL TRANSPLANT
     Dosage: 3 MG, BID
     Route: 048
     Dates: start: 20100319, end: 20100525

REACTIONS (18)
  - BLADDER CATHETER REMOVAL [None]
  - BLADDER CATHETERISATION [None]
  - BLADDER OPERATION [None]
  - BLOOD ALBUMIN DECREASED [None]
  - CYSTOSTOMY [None]
  - DYSLIPIDAEMIA [None]
  - LYMPHOCELE [None]
  - NEPHROTIC SYNDROME [None]
  - OEDEMA PERIPHERAL [None]
  - PROTEINURIA [None]
  - SCROTAL OEDEMA [None]
  - SURGERY [None]
  - URETHRAL DILATATION [None]
  - URETHRAL OPERATION [None]
  - URETHRAL STENOSIS [None]
  - URINARY TRACT INFECTION PSEUDOMONAL [None]
  - UROSTOMY [None]
  - WEIGHT INCREASED [None]
